FAERS Safety Report 9015368 (Version 2)
Quarter: 2013Q1

REPORT INFORMATION
  Report Type: Spontaneous
  Country: US (occurrence: None)
  Receive Date: 20130103
  Receipt Date: 20130115
  Transmission Date: 20140127
  Serious: Yes (Hospitalization)
  Sender: FDA-Public Use
  Company Number: 2012AP004382

PATIENT
  Age: 9 Year
  Sex: Female

DRUGS (9)
  1. FENTANYL [Suspect]
     Indication: PRODUCT USED FOR UNKNOWN INDICATION
     Dosage: QH;PCA
  2. MORPHINE [Suspect]
     Indication: ARTHRALGIA
     Dosage: Q2H
     Route: 042
  3. KETOROLAC [Suspect]
     Indication: ARTHRALGIA
     Dosage: Q6H
     Route: 042
  4. AMOXICILLIN W/CLAVULANIC ACID [Concomitant]
  5. METHOTREXATE [Concomitant]
  6. NAPROXEN [Concomitant]
  7. ETANERCEPT [Concomitant]
  8. LORAZEPAM [Concomitant]
  9. HYDROMORPHONE [Suspect]
     Dosage: QH;PCA

REACTIONS (7)
  - Hyperaesthesia [None]
  - Agitation [None]
  - Tachycardia [None]
  - Arthralgia [None]
  - Pain in extremity [None]
  - Musculoskeletal pain [None]
  - Pain in extremity [None]
